FAERS Safety Report 5527908-8 (Version None)
Quarter: 2007Q4

REPORT INFORMATION
  Report Type: 
  Country: None (occurrence: None)
  Receive Date: 20071126
  Receipt Date: 20071126
  Transmission Date: 20080405
  Serious: Yes (Life-Threatening, Hospitalization)
  Sender: FDA-Public Use
  Company Number: None

PATIENT
  Sex: Male
  Weight: 109.3169 kg

DRUGS (2)
  1. AVELOX [Suspect]
     Indication: SINUSITIS
     Dosage: 400 MG  ONE DAILY  PO
     Route: 048
     Dates: start: 20061121, end: 20061130
  2. AVELOX [Suspect]
     Indication: BRONCHITIS
     Dosage: 400 MG  ONE DAILY  PO
     Route: 048
     Dates: start: 20070924, end: 20070924

REACTIONS (11)
  - BLOOD PRESSURE DECREASED [None]
  - BRONCHITIS [None]
  - CARDIAC FAILURE CONGESTIVE [None]
  - DIZZINESS [None]
  - EOSINOPHILIA [None]
  - HYPERHIDROSIS [None]
  - LEFT VENTRICULAR DYSFUNCTION [None]
  - PLEURAL EFFUSION [None]
  - PULMONARY OEDEMA [None]
  - RHEUMATOID ARTHRITIS [None]
  - VASCULITIS [None]
